FAERS Safety Report 5705722-8 (Version None)
Quarter: 2008Q2

REPORT INFORMATION
  Report Type: 
  Country: None (occurrence: None)
  Receive Date: 20080415
  Receipt Date: 20080408
  Transmission Date: 20081010
  Serious: Yes (Disabling)
  Sender: FDA-Public Use
  Company Number: B0484834A

PATIENT
  Age: 55 Year
  Sex: Male

DRUGS (6)
  1. AUGMENTIN '125' [Suspect]
     Indication: DRUG USE FOR UNKNOWN INDICATION
     Dosage: 1TAB TWICE PER DAY
     Route: 048
  2. PROGOUT [Concomitant]
  3. EZETROL [Concomitant]
  4. UNKNOWN [Concomitant]
  5. SERETIDE [Concomitant]
     Indication: ASTHMA
  6. ASMOL [Concomitant]
     Indication: ASTHMA

REACTIONS (5)
  - ERYTHEMA [None]
  - FEELING HOT [None]
  - PARAESTHESIA [None]
  - PHOTOSENSITIVITY ALLERGIC REACTION [None]
  - PRURITUS [None]
